FAERS Safety Report 9455401 (Version 1)
Quarter: 2013Q3

REPORT INFORMATION
  Report Type: Spontaneous
  Country: JP (occurrence: JP)
  Receive Date: 20130813
  Receipt Date: 20130813
  Transmission Date: 20140515
  Serious: Yes (Other)
  Sender: FDA-Public Use
  Company Number: PHHY2013JP086582

PATIENT
  Sex: 0

DRUGS (2)
  1. ZOMETA [Suspect]
     Indication: BONE CANCER
     Dosage: UNK UKN, UNK
     Route: 041
  2. ADRENAL CORTICAL EXTRACT [Concomitant]
     Dosage: UNK UKN, UNK

REACTIONS (1)
  - Osteonecrosis [Unknown]
